FAERS Safety Report 23129609 (Version 3)
Quarter: 2024Q1

REPORT INFORMATION
  Report Type: Report from Study
  Country: CA (occurrence: CA)
  Receive Date: 20231031
  Receipt Date: 20240208
  Transmission Date: 20240409
  Serious: Yes (Other)
  Sender: FDA-Public Use
  Company Number: CA-MYLANLABS-2023M1111488

PATIENT

DRUGS (2)
  1. HULIO [Suspect]
     Active Substance: ADALIMUMAB-FKJP
     Indication: Crohn^s disease
     Dosage: 180 MILLIGRAM
     Route: 065
     Dates: start: 20231002
  2. HULIO [Suspect]
     Active Substance: ADALIMUMAB-FKJP
     Dosage: 40 MILLIGRAM, BIWEEKLY
     Route: 058
     Dates: start: 20231002

REACTIONS (3)
  - Pelvic inflammatory disease [Unknown]
  - Pelvic infection [Unknown]
  - Off label use [Unknown]

NARRATIVE: CASE EVENT DATE: 20231002
